FAERS Safety Report 6081062-5 (Version None)
Quarter: 2009Q1

REPORT INFORMATION
  Report Type: 
  Country: None (occurrence: None)
  Receive Date: 20090217
  Receipt Date: 20090205
  Transmission Date: 20090719
  Serious: Yes (Death, Hospitalization)
  Sender: FDA-Public Use
  Company Number: TH-BAXTER-2009BH002186

PATIENT
  Age: 73 Year
  Sex: Female

DRUGS (1)
  1. DIANEAL [Suspect]
     Indication: RENAL FAILURE CHRONIC
     Route: 033
     Dates: start: 20080212, end: 20090127

REACTIONS (2)
  - CARDIAC FAILURE CONGESTIVE [None]
  - LOSS OF CONSCIOUSNESS [None]
